FAERS Safety Report 4628760-5 (Version None)
Quarter: 2005Q2

REPORT INFORMATION
  Report Type: 
  Country: None (occurrence: None)
  Receive Date: 20050406
  Receipt Date: 20050317
  Transmission Date: 20051028
  Serious: Yes (Other)
  Sender: FDA-Public Use
  Company Number: 163-20785-05030483

PATIENT
  Age: 17 Year
  Sex: Female

DRUGS (8)
  1. THALOMID [Suspect]
     Indication: NAUSEA
     Dosage: 300 MG DAILY ORAL
     Route: 048
     Dates: start: 20040301, end: 20041202
  2. PAXIL [Concomitant]
  3. FOLIC ACID [Concomitant]
  4. CHORIONIC GONATROPIN 10 [Concomitant]
  5. VITAMIN B COMPLEX CAP [Concomitant]
  6. VITAMIN B-12 [Concomitant]
  7. CORTISOL [Concomitant]
  8. LITHIUM CARBONATE [Concomitant]

REACTIONS (4)
  - ADRENAL DISORDER [None]
  - DRUG INEFFECTIVE [None]
  - MENOPAUSE [None]
  - NEUROPATHY [None]
